FAERS Safety Report 4992692-3 (Version None)
Quarter: 2006Q2

REPORT INFORMATION
  Report Type: 
  Country: None (occurrence: None)
  Receive Date: 20060504
  Receipt Date: 20060420
  Transmission Date: 20061013
  Serious: Yes (Death)
  Sender: FDA-Public Use
  Company Number: NL-BOEHRINGER INGELHEIM PHARMACEUTICALS, INC.-2006-DE-02018GD

PATIENT
  Age: 6 Year
  Sex: Female

DRUGS (2)
  1. SALBUTAMOL [Suspect]
     Indication: ASTHMA
     Route: 055
  2. ATROVENT [Suspect]
     Indication: ASTHMA
     Route: 055

REACTIONS (1)
  - BRONCHOSPASM [None]
